FAERS Safety Report 8042285-9 (Version None)
Quarter: 2012Q1

REPORT INFORMATION
  Report Type: 
  Country: None (occurrence: None)
  Receive Date: 20120112
  Receipt Date: 20120109
  Transmission Date: 20120608
  Serious: Yes (Other)
  Sender: FDA-Public Use
  Company Number: MX-TEVA-316700ISR

PATIENT
  Age: 8 Year
  Sex: Female

DRUGS (4)
  1. IFOSFAMIDE [Suspect]
     Route: 042
  2. MESNA [Suspect]
     Route: 042
  3. MESNA [Suspect]
     Dosage: DESESITISATION
  4. IFOSFAMIDE [Suspect]
     Dosage: DESESITISATION

REACTIONS (2)
  - ANGIOEDEMA [None]
  - PRURIGO [None]
